FAERS Safety Report 9672496 (Version 1)
Quarter: 2013Q4

REPORT INFORMATION
  Report Type: Spontaneous
  Country: US (occurrence: US)
  Receive Date: 20131106
  Receipt Date: 20131106
  Transmission Date: 20140711
  Serious: No
  Sender: FDA-Public Use
  Company Number: US-TEVA-442679USA

PATIENT
  Sex: Female
  Weight: 62.65 kg

DRUGS (5)
  1. NUVIGIL [Suspect]
     Indication: NARCOLEPSY
     Route: 048
  2. ZOLPIDEM [Concomitant]
     Indication: SLEEP DISORDER
  3. CYMBALTA [Concomitant]
     Indication: CATAPLEXY
  4. CRESTOR [Concomitant]
  5. LABETALOL [Concomitant]
     Indication: BLOOD PRESSURE

REACTIONS (6)
  - Sleep disorder [Not Recovered/Not Resolved]
  - Dizziness [Not Recovered/Not Resolved]
  - Balance disorder [Not Recovered/Not Resolved]
  - Weight increased [Not Recovered/Not Resolved]
  - Sinus disorder [Not Recovered/Not Resolved]
  - Drug administration error [Not Recovered/Not Resolved]
